FAERS Safety Report 19395214 (Version 1)
Quarter: 2021Q2

REPORT INFORMATION
  Report Type: Spontaneous
  Country: US (occurrence: US)
  Receive Date: 20210609
  Receipt Date: 20210609
  Transmission Date: 20210717
  Serious: Yes (Hospitalization)
  Sender: FDA-Public Use
  Company Number: US-ELI_LILLY_AND_COMPANY-US202105013235

PATIENT
  Sex: Male

DRUGS (1)
  1. CYMBALTA [Suspect]
     Active Substance: DULOXETINE HYDROCHLORIDE
     Indication: PRODUCT USED FOR UNKNOWN INDICATION
     Dosage: UNK, UNKNOWN
     Route: 065

REACTIONS (7)
  - Cervical spinal stenosis [Not Recovered/Not Resolved]
  - Arthropathy [Unknown]
  - Speech disorder [Not Recovered/Not Resolved]
  - Drug withdrawal syndrome [Unknown]
  - Vertigo [Unknown]
  - Dizziness [Unknown]
  - Fall [Unknown]
